FAERS Safety Report 18471044 (Version 1)
Quarter: 2020Q4

REPORT INFORMATION
  Report Type: Spontaneous
  Country: US (occurrence: US)
  Receive Date: 20201106
  Receipt Date: 20201106
  Transmission Date: 20210114
  Serious: No
  Sender: FDA-Public Use
  Company Number: US-EMD SERONO-7004720

PATIENT
  Age: 52 Year
  Sex: Female

DRUGS (2)
  1. IBUPROFEN. [Concomitant]
     Active Substance: IBUPROFEN
     Indication: PREMEDICATION
  2. REBIF [Suspect]
     Active Substance: INTERFERON BETA-1A
     Indication: MULTIPLE SCLEROSIS
     Route: 058
     Dates: start: 20081217, end: 20171115

REACTIONS (5)
  - Injection site pruritus [Unknown]
  - Alopecia [Unknown]
  - Dry skin [Unknown]
  - Injection site bruising [Unknown]
  - Injection site erythema [Unknown]

NARRATIVE: CASE EVENT DATE: 2010
